FAERS Safety Report 6753677-X (Version None)
Quarter: 2010Q2

REPORT INFORMATION
  Report Type: 
  Country: None (occurrence: None)
  Receive Date: 20100603
  Receipt Date: 20100531
  Transmission Date: 20101027
  Serious: Yes (Death)
  Sender: FDA-Public Use
  Company Number: FR-ROCHE-698455

PATIENT
  Sex: Male
  Weight: 66 kg

DRUGS (17)
  1. MIRCERA [Suspect]
     Route: 058
     Dates: start: 20090707, end: 20091220
  2. NEORECORMON [Suspect]
     Dosage: INDICATION: ANEMIA DUE TO CHRONIC RENAL INSUFFICIENCY
     Route: 058
     Dates: start: 20100109, end: 20100308
  3. EPREX [Suspect]
     Dosage: INDICATION: ANEMIA DUE TO CHRONIC RENAL INSUFFICIENCY
     Route: 042
     Dates: start: 20081028, end: 20090306
  4. ZOVIRAX [Concomitant]
  5. DEPAKENE [Concomitant]
  6. KARDEGIC [Concomitant]
  7. MONICOR L.P. [Concomitant]
  8. LASIX [Concomitant]
  9. DIFFU K [Concomitant]
  10. NEXIUM [Concomitant]
  11. CITALOPRAM HYDROBROMIDE [Concomitant]
  12. EQUANIL [Concomitant]
  13. FORLAX [Concomitant]
  14. SINEMET [Concomitant]
  15. SPECIAFOLDINE [Concomitant]
  16. VASTAREL [Concomitant]
  17. TERALITHE [Concomitant]
     Dosage: THERALITHE

REACTIONS (2)
  - APLASIA PURE RED CELL [None]
  - ENCEPHALITIS [None]
